FAERS Safety Report 8803011 (Version 1)
Quarter: 2012Q4

REPORT INFORMATION
  Report Type: 
  Country: US (occurrence: US)
  Receive Date: 20120924
  Receipt Date: 20120924
  Transmission Date: 20130627
  Serious: Yes (Other)
  Sender: FDA-Public Use
  Company Number: US-JNJFOC-20120812221

PATIENT
  Age: 18 Year
  Sex: Female

DRUGS (13)
  1. REMICADE [Suspect]
     Indication: COLITIS ULCERATIVE
     Dosage: 400-500 mg starting with 0,2,6 then 8 weeks series
     Route: 042
  2. REMICADE [Suspect]
     Indication: COLITIS ULCERATIVE
     Dosage: 400-500 mg starting with 0,2,6 then 8 weeks series
     Route: 042
     Dates: start: 20090409
  3. REMICADE [Suspect]
     Indication: COLITIS ULCERATIVE
     Dosage: 400-500 mg starting with 0,2,6 then 8 weeks series
     Route: 042
     Dates: start: 20090203
  4. REMICADE [Suspect]
     Indication: COLITIS ULCERATIVE
     Dosage: 400-500 mg starting with 0,2,6 then 8 weeks series
     Route: 042
     Dates: start: 20090106
  5. REMICADE [Suspect]
     Indication: COLITIS ULCERATIVE
     Dosage: 400-500 mg starting with 0,2,6 then 8 weeks series
     Route: 042
     Dates: start: 20081218
  6. ALL OTHER THERAPEUTIC DRUGS [Concomitant]
     Indication: PREMEDICATION
     Route: 065
  7. IMURAN [Concomitant]
     Route: 065
     Dates: start: 201005
  8. ASACOL [Concomitant]
     Route: 065
     Dates: start: 201005
  9. VSL3 [Concomitant]
     Route: 065
     Dates: start: 201012
  10. TYLENOL [Concomitant]
     Indication: PREMEDICATION
     Route: 065
  11. BENADRYL [Concomitant]
     Indication: PREMEDICATION
     Route: 065
  12. CLARITIN [Concomitant]
     Indication: PREMEDICATION
     Route: 065
  13. SOLU MEDROL [Concomitant]
     Indication: PREMEDICATION
     Route: 065

REACTIONS (12)
  - Crohn^s disease [Unknown]
  - Pruritus [Unknown]
  - Dyspnoea [Recovered/Resolved]
  - Infusion related reaction [Recovering/Resolving]
  - Flushing [Recovered/Resolved]
  - Urticaria [Unknown]
  - Dizziness [Recovered/Resolved]
  - Discomfort [Recovered/Resolved with Sequelae]
  - Hypoaesthesia [Recovered/Resolved with Sequelae]
  - Chest discomfort [Unknown]
  - Throat tightness [Recovered/Resolved]
  - Arthralgia [Unknown]
